FAERS Safety Report 8131292-3 (Version None)
Quarter: 2012Q1

REPORT INFORMATION
  Report Type: 
  Country: None (occurrence: None)
  Receive Date: 20120103
  Receipt Date: 20110920
  Transmission Date: 20120608
  Serious: No
  Sender: FDA-Public Use
  Company Number: AE-2011-001702

PATIENT
  Sex: Female
  Weight: 106.5953 kg

DRUGS (3)
  1. PEGASYS [Concomitant]
  2. INCIVEK [Suspect]
     Dosage: 2250 MG (750 MG,3 IN 1 D),ORAL
     Route: 048
     Dates: start: 20110806
  3. RIBAVIRIN [Concomitant]

REACTIONS (3)
  - RASH [None]
  - PRURITUS [None]
  - ANAL PRURITUS [None]
